FAERS Safety Report 4645237-1 (Version None)
Quarter: 2005Q2

REPORT INFORMATION
  Report Type: 
  Country: None (occurrence: None)
  Receive Date: 20050426
  Receipt Date: 20050419
  Transmission Date: 20051028
  Serious: Yes (Hospitalization)
  Sender: FDA-Public Use
  Company Number: NL-GLAXOSMITHKLINE-B0379014A

PATIENT
  Age: 43 Year
  Sex: Female

DRUGS (4)
  1. PAROXETINE HYDROCHLORIDE [Suspect]
     Indication: DEPRESSION
     Dates: start: 20050228, end: 20050301
  2. RISPERDAL [Suspect]
     Indication: PSYCHOTIC DISORDER
     Dosage: 2MG PER DAY
     Route: 065
     Dates: start: 20040901
  3. TEMAZEPAM [Concomitant]
     Indication: DRUG USE FOR UNKNOWN INDICATION
     Dates: start: 20050226
  4. ALPRAZOLAM [Concomitant]
     Dosage: .25MG TWICE PER DAY
     Dates: start: 20050226

REACTIONS (2)
  - DRUG INTERACTION [None]
  - PARKINSONISM [None]
